FAERS Safety Report 8353452 (Version 2)
Quarter: 2013Q3

REPORT INFORMATION
  Report Type: Spontaneous
  Country: US (occurrence: US)
  Receive Date: 20120125
  Receipt Date: 20130705
  Transmission Date: 20140515
  Serious: Yes (Other)
  Sender: FDA-Public Use
  Company Number: US-JNJFOC-20120107515

PATIENT
  Age: 13 Year
  Sex: 0

DRUGS (3)
  1. REMICADE [Suspect]
     Indication: CROHN^S DISEASE
     Route: 042
  2. REMICADE [Suspect]
     Indication: CROHN^S DISEASE
     Route: 042
  3. METHOTREXATE [Concomitant]
     Route: 065

REACTIONS (4)
  - Tachypnoea [Unknown]
  - Tachycardia [Unknown]
  - Urticaria [Unknown]
  - Back pain [Unknown]
